FAERS Safety Report 9628791 (Version 1)
Quarter: 2013Q4

REPORT INFORMATION
  Report Type: Spontaneous
  Country: JP (occurrence: JP)
  Receive Date: 20131017
  Receipt Date: 20131017
  Transmission Date: 20140711
  Serious: Yes (Other)
  Sender: FDA-Public Use
  Company Number: JP-ASTELLAS-2013JP011086

PATIENT
  Age: 55 Year
  Sex: Female

DRUGS (5)
  1. PROGRAF [Suspect]
     Indication: PROPHYLAXIS AGAINST TRANSPLANT REJECTION
     Route: 048
  2. PREDNISOLONE [Concomitant]
     Indication: CHOLANGITIS SCLEROSING
     Dosage: 5 MG, UNKNOWN/D
     Route: 048
  3. PREDNISOLONE [Concomitant]
     Indication: TRANSPLANT REJECTION
     Dosage: 20 MG, UNKNOWN/D
     Route: 048
  4. PREDNISOLONE [Concomitant]
     Indication: NEURALGIC AMYOTROPHY
     Dosage: UNK MG, UNKNOWN/D
     Route: 048
  5. PREDNISOLONE [Concomitant]
     Dosage: 2.5 MG, UNKNOWN/D
     Route: 048

REACTIONS (1)
  - Neuralgic amyotrophy [Recovering/Resolving]
